FAERS Safety Report 4841320-6 (Version None)
Quarter: 2005Q4

REPORT INFORMATION
  Report Type: 
  Country: None (occurrence: None)
  Receive Date: 20051130
  Receipt Date: 20050602
  Transmission Date: 20060501
  Serious: Yes (Hospitalization)
  Sender: FDA-Public Use
  Company Number: JP-GLAXOSMITHKLINE-B0383621A

PATIENT
  Age: 39 Year
  Sex: Female
  Weight: 43 kg

DRUGS (12)
  1. PAXIL [Suspect]
     Indication: DEPRESSIVE SYMPTOM
     Dosage: 20MG PER DAY
     Route: 048
     Dates: start: 20050305, end: 20050704
  2. ROHYPNOL [Concomitant]
     Dosage: 1MG PER DAY
     Route: 048
     Dates: start: 20050516
  3. DEPAS [Concomitant]
     Dosage: 1MG PER DAY
     Route: 048
     Dates: start: 20050305
  4. MEILAX [Concomitant]
     Dosage: 4MG PER DAY
     Route: 048
     Dates: start: 20050111
  5. SOLANAX [Concomitant]
     Dosage: .4MG PER DAY
     Route: 048
     Dates: start: 20050305
  6. PREDONINE [Concomitant]
     Dosage: 32.5MG PER DAY
     Route: 048
     Dates: start: 20050111
  7. ACINON [Concomitant]
     Dosage: 600MG PER DAY
     Route: 048
     Dates: start: 20050111
  8. ALFAROL [Concomitant]
     Indication: OSTEOPOROSIS PROPHYLAXIS
     Dosage: 1MCG PER DAY
     Route: 048
     Dates: start: 20050111
  9. SELBEX [Concomitant]
     Dosage: 450MG PER DAY
     Route: 048
     Dates: start: 20050111
  10. IMURAN [Concomitant]
     Dosage: 100MG PER DAY
     Route: 048
     Dates: start: 20050305
  11. CALCIUM LACTATE [Concomitant]
     Indication: OSTEOPOROSIS PROPHYLAXIS
     Dosage: 4G PER DAY
     Route: 048
     Dates: start: 20050111
  12. ALEVIATIN [Concomitant]
     Indication: EPILEPSY
     Dosage: 6.9G PER DAY
     Route: 048
     Dates: start: 20050704

REACTIONS (6)
  - CONVERSION DISORDER [None]
  - DEPRESSED LEVEL OF CONSCIOUSNESS [None]
  - EPILEPSY [None]
  - GRAND MAL CONVULSION [None]
  - MYOCLONUS [None]
  - SEROTONIN SYNDROME [None]
